FAERS Safety Report 15789269 (Version 2)
Quarter: 2019Q2

REPORT INFORMATION
  Report Type: Spontaneous
  Country: US (occurrence: US)
  Receive Date: 20190104
  Receipt Date: 20190405
  Transmission Date: 20190711
  Serious: No
  Sender: FDA-Public Use
  Company Number: US-PFIZER INC-2019003539

PATIENT
  Age: 75 Year
  Sex: Female
  Weight: 63.5 kg

DRUGS (4)
  1. LETROZOLE. [Suspect]
     Active Substance: LETROZOLE
     Indication: BREAST CANCER FEMALE
     Dosage: 2.5 MG, DAILY
  2. LOSARTAN. [Concomitant]
     Active Substance: LOSARTAN
     Indication: HYPERTENSION
     Dosage: 100 MG, 1X/DAY (100MG 1 TABLET BY MOUTH ONCE A DAY)
     Route: 048
  3. IBRANCE [Suspect]
     Active Substance: PALBOCICLIB
     Indication: BREAST CANCER FEMALE
     Dosage: 1 DF, CYCLIC (1 CAPSULE BY MOUTH FOR 21 DAYS AND OFF 7 DAYS)
     Route: 048
     Dates: start: 201809
  4. IBRANCE [Suspect]
     Active Substance: PALBOCICLIB
     Dosage: 125 MG, DAILY

REACTIONS (2)
  - Dysphonia [Recovered/Resolved]
  - Sinus disorder [Recovered/Resolved]

NARRATIVE: CASE EVENT DATE: 20181231
